FAERS Safety Report 12743242 (Version 1)
Quarter: 2016Q3

REPORT INFORMATION
  Report Type: Report from Study
  Country: ES (occurrence: ES)
  Receive Date: 20160914
  Receipt Date: 20160914
  Transmission Date: 20161109
  Serious: Yes (Death, Other)
  Sender: FDA-Public Use
  Company Number: ES-BAXTER-2016BAX046402

PATIENT
  Age: 81 Year

DRUGS (11)
  1. GENOXAL [Suspect]
     Active Substance: CYCLOPHOSPHAMIDE
     Indication: CHRONIC LYMPHOCYTIC LEUKAEMIA
     Dosage: COMPLETE DOSE
     Route: 065
     Dates: start: 20110531, end: 20110603
  2. RITUXIMAB [Suspect]
     Active Substance: RITUXIMAB
     Dosage: DELAY DUE TO FEBRILE NEUTROPENIA, SINGLE DOSE
     Route: 065
     Dates: start: 20110808, end: 20110808
  3. GENOXAL [Suspect]
     Active Substance: CYCLOPHOSPHAMIDE
     Dosage: COMPLETE DOSE
     Route: 065
     Dates: start: 20110912, end: 20110914
  4. RITUXIMAB [Suspect]
     Active Substance: RITUXIMAB
     Dosage: COMPLETE DATE
     Route: 065
     Dates: start: 20110912, end: 20110914
  5. FLUDARABINE [Suspect]
     Active Substance: FLUDARABINE PHOSPHATE
     Dosage: DELAY AND REDUCE DUE TO HEMATOLOGIC/NON HEMATOLOGIC TOXICITY
     Route: 065
     Dates: start: 20110912, end: 20110914
  6. FLUDARABINE [Suspect]
     Active Substance: FLUDARABINE PHOSPHATE
     Indication: CHRONIC LYMPHOCYTIC LEUKAEMIA
     Dosage: COMPLETE DOSE
     Route: 065
     Dates: start: 20110531, end: 20110603
  7. FLUDARABINE [Suspect]
     Active Substance: FLUDARABINE PHOSPHATE
     Dosage: COMPLETE DOSE
     Route: 065
     Dates: start: 20110628, end: 20110630
  8. GENOXAL [Suspect]
     Active Substance: CYCLOPHOSPHAMIDE
     Dosage: COMPLETE DOSE
     Route: 065
     Dates: start: 20110628, end: 20110630
  9. RITUXIMAB [Suspect]
     Active Substance: RITUXIMAB
     Indication: CHRONIC LYMPHOCYTIC LEUKAEMIA
     Dosage: COMPLETE DOSE
     Route: 065
     Dates: start: 20110531, end: 20110603
  10. RITUXIMAB [Suspect]
     Active Substance: RITUXIMAB
     Dosage: COMPLETE DOSE
     Route: 065
     Dates: start: 20110628, end: 20110630
  11. RITUXIMAB [Suspect]
     Active Substance: RITUXIMAB
     Dosage: COMPLETE DOSE
     Route: 065
     Dates: start: 20110531

REACTIONS (3)
  - Febrile neutropenia [Unknown]
  - Enteritis [Unknown]
  - Disease progression [Fatal]

NARRATIVE: CASE EVENT DATE: 2011
